FAERS Safety Report 8643058 (Version 2)
Quarter: 2012Q4

REPORT INFORMATION
  Report Type: 
  Country: CO (occurrence: CO)
  Receive Date: 20120629
  Receipt Date: 20121004
  Transmission Date: 20130627
  Serious: Yes (Hospitalization, Other)
  Sender: FDA-Public Use
  Company Number: CO-PFIZER INC-2012153612

PATIENT
  Sex: Male

DRUGS (5)
  1. CARDURAN NEO [Suspect]
     Indication: REHABILITATION THERAPY
     Dosage: 4 mg, 1x/day
     Route: 048
     Dates: start: 2002
  2. CARVEDILOL [Concomitant]
     Indication: REHABILITATION THERAPY
     Dosage: 25 mg, each 8 hours
     Route: 048
     Dates: start: 2002
  3. ENALAPRIL [Concomitant]
     Indication: REHABILITATION THERAPY
     Dosage: 20 mg, each 12 hours
     Route: 048
     Dates: start: 2002
  4. HYDROXYZINE [Concomitant]
     Indication: REHABILITATION THERAPY
     Dosage: UNK
     Route: 065
  5. WARFARIN [Concomitant]
     Indication: REHABILITATION THERAPY
     Dosage: UNK
     Route: 065

REACTIONS (7)
  - Angiopathy [Unknown]
  - Hypoacusis [Unknown]
  - Ear infection [Recovering/Resolving]
  - Pruritus [Recovering/Resolving]
  - Auricular swelling [Recovering/Resolving]
  - Drug dose omission [Unknown]
  - Dizziness [Unknown]
